FAERS Safety Report 5392643-6 (Version None)
Quarter: 2007Q3

REPORT INFORMATION
  Report Type: 
  Country: None (occurrence: None)
  Receive Date: 20070720
  Receipt Date: 20070717
  Transmission Date: 20080115
  Serious: Yes (Death)
  Sender: FDA-Public Use
  Company Number: US-GENENTECH-244744

PATIENT
  Sex: Female

DRUGS (19)
  1. RANIBIZUMAB [Suspect]
     Indication: CHOROIDAL NEOVASCULARISATION
     Dosage: UNK, UNK
     Route: 031
     Dates: start: 20060511
  2. TYLENOL (CAPLET) [Concomitant]
     Indication: ARTHRITIS
     Dates: start: 20050101
  3. ASPIRIN [Concomitant]
     Indication: PROPHYLAXIS
  4. DEPAKOTE [Concomitant]
     Indication: CONVULSION
     Dates: start: 20000101
  5. QUININE [Concomitant]
     Indication: GOUT
     Dates: start: 20040101
  6. FUROSEMIDE [Concomitant]
     Indication: OEDEMA PERIPHERAL
  7. PRILOSEC [Concomitant]
     Indication: GASTRIC DISORDER
     Dates: start: 20051001
  8. COLACE [Concomitant]
     Indication: CONSTIPATION
     Dates: start: 20060719
  9. LIDOCAINE [Concomitant]
     Indication: BACK PAIN
     Dates: start: 20060719
  10. LISINOPRIL [Concomitant]
     Indication: HYPERTENSION
  11. MEGESTROL ACETATE [Concomitant]
     Indication: DRUG USE FOR UNKNOWN INDICATION
     Dates: start: 20060719
  12. PERCOCET [Concomitant]
     Indication: BACK PAIN
     Dates: start: 20060719
  13. PROTONIX [Concomitant]
     Indication: GASTRIC ULCER
     Dates: start: 20060719
  14. SENOKOT [Concomitant]
     Indication: CONSTIPATION
     Dates: start: 20060719
  15. DILAUDID [Concomitant]
     Indication: BACK PAIN
     Dates: start: 20060719, end: 20060726
  16. OXYCODONE HCL [Concomitant]
     Indication: BACK PAIN
     Dates: start: 20060719, end: 20060726
  17. SODIUM PHOSPHATES [Concomitant]
     Indication: CONSTIPATION
  18. HEPARIN [Concomitant]
     Indication: ANTICOAGULANT THERAPY
     Dates: start: 20060719, end: 20060726
  19. NORVASC [Concomitant]
     Indication: HYPERTENSION
     Dates: start: 20060719

REACTIONS (1)
  - DEATH [None]
